FAERS Safety Report 17216673 (Version 2)
Quarter: 2020Q1

REPORT INFORMATION
  Report Type: Report from Study
  Country: None (occurrence: NZ)
  Receive Date: 20191230
  Receipt Date: 20200116
  Transmission Date: 20200409
  Serious: Yes (Other)
  Sender: FDA-Public Use
  Company Number: NZ-ABBVIE-19K-118-3212209-00

PATIENT
  Weight: 90 kg

DRUGS (2)
  1. HUMIRA [Suspect]
     Active Substance: ADALIMUMAB
     Indication: CROHN^S DISEASE
     Route: 058
  2. HUMIRA [Suspect]
     Active Substance: ADALIMUMAB
     Dosage: DOSE INCREASED
     Route: 058

REACTIONS (5)
  - Enteritis [Unknown]
  - Ileostomy [Unknown]
  - Small intestinal obstruction [Unknown]
  - Gastrointestinal disorder [Unknown]
  - Drug level decreased [Unknown]

NARRATIVE: CASE EVENT DATE: 2019
